FAERS Safety Report 9416663 (Version 1)
Quarter: 2013Q3

REPORT INFORMATION
  Report Type: Spontaneous
  Country: JP (occurrence: None)
  Receive Date: 20130719
  Receipt Date: 20130719
  Transmission Date: 20140515
  Serious: Yes (Hospitalization)
  Sender: FDA-Public Use
  Company Number: TPA2013A04734

PATIENT
  Age: 94 Year
  Sex: Male

DRUGS (18)
  1. FEBURIC [Suspect]
     Indication: HYPERURICAEMIA
     Route: 048
  2. IMURAN (AZATHIOPRINE) [Suspect]
     Indication: COLITIS ULCERATIVE
     Route: 048
     Dates: start: 20130312
  3. KREMEZIN (CHARCOAL, ACTIVATED) [Concomitant]
  4. ADALAT (NIFEDIPINE) [Concomitant]
  5. CRESTOR (ROSUVASTATIN CALCIUM) [Concomitant]
  6. PARIET (RABEPRAZOLE SODIUM) [Concomitant]
  7. LASIX (FUROSEMIDE) [Concomitant]
  8. ARTIST (CARVEDILOL) [Concomitant]
  9. CALBLOCK (AZELNIDIPINE) [Concomitant]
  10. PLETAAL (CILOSTAZOL) TABLET [Concomitant]
  11. OLMETEC (OLMESARTAN MEDOXOMIL) [Concomitant]
  12. PENTASA (MESALAZINE) [Concomitant]
  13. SALAZOPYRIN (SULFASALAZINE) [Concomitant]
  14. MIYA BM (CLOSTRIDIUM BUTYRICUM) [Concomitant]
  15. URIEF (STILODOSIN) [Concomitant]
  16. AVOLVE (DUTASTERIDE) [Concomitant]
  17. PRORENAL (LIMAPROST) [Concomitant]
  18. ALDACTONE A (SPIRONOLACTONE) [Concomitant]

REACTIONS (2)
  - Drug interaction [None]
  - Pancytopenia [None]
